FAERS Safety Report 16252341 (Version 1)
Quarter: 2019Q2

REPORT INFORMATION
  Report Type: Spontaneous
  Country: CN (occurrence: CN)
  Receive Date: 20190429
  Receipt Date: 20190429
  Transmission Date: 20190711
  Serious: Yes (Other)
  Sender: FDA-Public Use
  Company Number: CN-ELI_LILLY_AND_COMPANY-CN201904013684

PATIENT
  Sex: Male
  Weight: 78.5 kg

DRUGS (8)
  1. INSULIN ASPART [Concomitant]
     Active Substance: INSULIN ASPART
     Dosage: 30 IU, UNKNOWN
     Route: 065
  2. METFORMIN HYDROCHLORIDE. [Concomitant]
     Active Substance: METFORMIN HYDROCHLORIDE
     Indication: PRODUCT USED FOR UNKNOWN INDICATION
     Dosage: .5 G, BID
     Route: 048
  3. INSULIN LISPRO [Suspect]
     Active Substance: INSULIN LISPRO
     Dosage: 6 IU, BID
     Route: 058
     Dates: end: 20190417
  4. INSULIN ASPART [Concomitant]
     Active Substance: INSULIN ASPART
     Indication: PRODUCT USED FOR UNKNOWN INDICATION
     Dosage: 32 IU EACH MORNING
     Route: 065
  5. DAPAGLIFLOZIN. [Concomitant]
     Active Substance: DAPAGLIFLOZIN
     Indication: BLOOD GLUCOSE INCREASED
     Dosage: 10 MG, DAILY
     Route: 048
     Dates: start: 20190410, end: 20190417
  6. INSULIN LISPRO [Suspect]
     Active Substance: INSULIN LISPRO
     Indication: BLOOD GLUCOSE INCREASED
     Dosage: 10 IU, TID
     Route: 058
     Dates: start: 20190411
  7. INSULIN LISPRO [Suspect]
     Active Substance: INSULIN LISPRO
     Dosage: 10 IU, DAILY
     Route: 058
     Dates: end: 20190417
  8. INSULIN ASPART [Concomitant]
     Active Substance: INSULIN ASPART
     Dosage: 22 IU, EACH EVENING
     Route: 065

REACTIONS (4)
  - Blood glucose increased [Recovering/Resolving]
  - Palpitations [Recovering/Resolving]
  - Chest discomfort [Recovering/Resolving]
  - Hyperhidrosis [Recovering/Resolving]

NARRATIVE: CASE EVENT DATE: 20190411
